FAERS Safety Report 20591340 (Version 1)
Quarter: 2022Q1

REPORT INFORMATION
  Report Type: Spontaneous
  Country: JP (occurrence: JP)
  Receive Date: 20220314
  Receipt Date: 20220314
  Transmission Date: 20220423
  Serious: Yes (Death, Hospitalization)
  Sender: FDA-Public Use
  Company Number: JP-CHUGAI-2022001551

PATIENT
  Age: 75 Year
  Sex: Female
  Weight: 32.6 kg

DRUGS (4)
  1. AVASTIN [Suspect]
     Active Substance: BEVACIZUMAB
     Indication: Mucinous cystadenocarcinoma ovary
     Route: 041
     Dates: start: 20201015, end: 20210311
  2. AVASTIN [Suspect]
     Active Substance: BEVACIZUMAB
     Route: 041
     Dates: start: 20210401, end: 20211118
  3. PACLITAXEL [Concomitant]
     Active Substance: PACLITAXEL
     Indication: Mucinous cystadenocarcinoma ovary
     Dosage: UNK
     Route: 041
     Dates: start: 20200916, end: 20210210
  4. CARBOPLATIN [Concomitant]
     Active Substance: CARBOPLATIN
     Indication: Mucinous cystadenocarcinoma ovary
     Dosage: UNK
     Route: 041
     Dates: start: 20200916, end: 20210210

REACTIONS (3)
  - Intestinal perforation [Fatal]
  - Malignant ascites [Fatal]
  - Mucinous cystadenocarcinoma ovary [Fatal]

NARRATIVE: CASE EVENT DATE: 20211120
